FAERS Safety Report 22372274 (Version 1)
Quarter: 2023Q2

REPORT INFORMATION
  Report Type: Spontaneous
  Country: US (occurrence: US)
  Receive Date: 20230526
  Receipt Date: 20230526
  Transmission Date: 20230722
  Serious: No
  Sender: FDA-Public Use
  Company Number: US-BANNER LIFE SCIENCES, LLC-2023BAN000083

PATIENT

DRUGS (1)
  1. BAFIERTAM [Suspect]
     Active Substance: MONOMETHYL FUMARATE
     Indication: Multiple sclerosis
     Dosage: 95 MILLIGRAM, TAKE 1 CAPSULE BY MOUTH 2 TIMES A DAY FOR 7 DAYS THEN 2 CAPSULES BY MOUTH 2 TIMES A DA
     Dates: start: 202303

REACTIONS (6)
  - Multiple sclerosis relapse [Unknown]
  - Headache [Unknown]
  - Paraesthesia [Unknown]
  - Feeling abnormal [Unknown]
  - Feeling hot [Unknown]
  - Pruritus [Unknown]

NARRATIVE: CASE EVENT DATE: 20230301
